FAERS Safety Report 5449728-5 (Version None)
Quarter: 2007Q3

REPORT INFORMATION
  Report Type: 
  Country: None (occurrence: None)
  Receive Date: 20070910
  Receipt Date: 20070828
  Transmission Date: 20080115
  Serious: Yes (Hospitalization)
  Sender: FDA-Public Use
  Company Number: 2006P1000293

PATIENT
  Age: 60 Year
  Sex: Male
  Weight: 75 kg

DRUGS (6)
  1. PLACEBO (PLACEBO) [Concomitant]
     Indication: ACUTE MYOCARDIAL INFARCTION
     Dosage: 5 IU;BID;IV
     Route: 042
     Dates: start: 20051230, end: 20051230
  2. ABCIXIMAB (ABCIXIMAB) [Suspect]
     Indication: ACUTE MYOCARDIAL INFARCTION
     Dosage: 9.4 MG;X1;IV
     Route: 042
     Dates: start: 20051230, end: 20051230
  3. ENOXAPARIN SODIUM [Concomitant]
  4. ASPIRIN [Concomitant]
  5. BISOPROLOL [Concomitant]
  6. SIMVASTATIN [Concomitant]

REACTIONS (2)
  - RENAL FAILURE ACUTE [None]
  - STAPHYLOCOCCAL SEPSIS [None]
